FAERS Safety Report 5247098-9 (Version None)
Quarter: 2007Q1

REPORT INFORMATION
  Report Type: 
  Country: None (occurrence: None)
  Receive Date: 20070226
  Receipt Date: 20070216
  Transmission Date: 20070707
  Serious: Yes (Other)
  Sender: FDA-Public Use
  Company Number: JP-MERCK-0702USA03753

PATIENT

DRUGS (3)
  1. FOSAMAX [Suspect]
     Route: 048
  2. ALKERAN [Concomitant]
     Route: 065
  3. PREDONINE [Concomitant]
     Route: 065

REACTIONS (5)
  - DEHYDRATION [None]
  - DIARRHOEA [None]
  - HYPOCALCAEMIA [None]
  - RENAL FAILURE ACUTE [None]
  - VOMITING [None]
